FAERS Safety Report 5840183-X (Version None)
Quarter: 2008Q3

REPORT INFORMATION
  Report Type: 
  Country: None (occurrence: None)
  Receive Date: 20080730
  Receipt Date: 20080424
  Transmission Date: 20090109
  Serious: No
  Sender: FDA-Public Use
  Company Number: PHEH2008US04059

PATIENT
  Sex: Male

DRUGS (2)
  1. TEKTURNA [Suspect]
     Indication: HYPERTENSION
     Dosage: 300 MG
  2. CIPRO [Suspect]
     Indication: URINARY TRACT INFECTION

REACTIONS (3)
  - ARTHRALGIA [None]
  - MYALGIA [None]
  - PRURITUS [None]
